FAERS Safety Report 4649687-9 (Version None)
Quarter: 2005Q2

REPORT INFORMATION
  Report Type: 
  Country: None (occurrence: None)
  Receive Date: 20050502
  Receipt Date: 20041111
  Transmission Date: 20051028
  Serious: Yes (Death)
  Sender: FDA-Public Use
  Company Number: 200418719US

PATIENT
  Sex: Male
  Weight: 83 kg

DRUGS (7)
  1. LOVENOX [Suspect]
     Indication: CORONARY ANGIOPLASTY
     Route: 040
     Dates: start: 20041110, end: 20041110
  2. INTEGRILIN [Suspect]
     Indication: CORONARY ARTERY DISEASE
     Dosage: FREQUENCY: CONTINUOUS; DOSE UNIT: MILLILITRE PER HOUR
     Route: 041
     Dates: start: 20041110, end: 20041110
  3. LIPITOR [Concomitant]
     Indication: HYPERCHOLESTEROLAEMIA
     Route: 048
     Dates: start: 20041020, end: 20041110
  4. ASPIRIN [Concomitant]
     Indication: CORONARY ARTERY DISEASE
     Route: 048
     Dates: start: 20041020, end: 20041110
  5. PLAVIX [Concomitant]
     Indication: CORONARY ARTERY DISEASE
     Route: 048
     Dates: start: 20041020, end: 20041110
  6. TOPROL-XL [Concomitant]
     Indication: CORONARY ARTERY DISEASE
     Route: 048
     Dates: start: 20041020, end: 20041110
  7. MAVIK [Concomitant]
     Indication: CORONARY ARTERY DISEASE
     Route: 048
     Dates: start: 20041020, end: 20041110

REACTIONS (6)
  - ABDOMINAL PAIN LOWER [None]
  - CARDIAC TAMPONADE [None]
  - DIARRHOEA [None]
  - NAUSEA [None]
  - PERICARDITIS [None]
  - VOMITING [None]
